FAERS Safety Report 15323293 (Version 2)
Quarter: 2018Q4

REPORT INFORMATION
  Report Type: Report from Study
  Country: US (occurrence: US)
  Receive Date: 20180827
  Receipt Date: 20181015
  Transmission Date: 20190204
  Serious: Yes (Hospitalization)
  Sender: FDA-Public Use
  Company Number: US-ACTELION-A-US2018-171884

PATIENT
  Age: 68 Year
  Sex: Female
  Weight: 54.88 kg

DRUGS (4)
  1. VENTAVIS [Suspect]
     Active Substance: ILOPROST
     Indication: PULMONARY ARTERIAL HYPERTENSION
     Dosage: 5 MCG, 6-9 TIMES PER DAY
     Route: 055
  2. LETAIRIS [Concomitant]
     Active Substance: AMBRISENTAN
  3. WARFARIN [Concomitant]
     Active Substance: WARFARIN
  4. ADCIRCA [Concomitant]
     Active Substance: TADALAFIL

REACTIONS (3)
  - Hospitalisation [Unknown]
  - Cough [Unknown]
  - Oxygen saturation decreased [Unknown]
